FAERS Safety Report 22085874 (Version 1)
Quarter: 2023Q1

REPORT INFORMATION
  Report Type: Spontaneous
  Country: US (occurrence: US)
  Receive Date: 20230310
  Receipt Date: 20230310
  Transmission Date: 20230417
  Serious: Yes (Other)
  Sender: FDA-Public Use
  Company Number: US-002147023-NVSC2023US052231

PATIENT
  Age: 80 Year
  Sex: Male

DRUGS (5)
  1. CLINDAMYCIN [Suspect]
     Active Substance: CLINDAMYCIN
     Indication: Babesiosis
     Dosage: 600 MG, TID
     Route: 065
  2. CLINDAMYCIN [Suspect]
     Active Substance: CLINDAMYCIN
     Dosage: ADDED ON DAY 148
     Route: 065
  3. CLINDAMYCIN [Suspect]
     Active Substance: CLINDAMYCIN
     Dosage: 300 MG, TID (ON DAY 227)
     Route: 065
  4. QUININE [Suspect]
     Active Substance: QUININE
     Indication: Babesiosis
     Dosage: 648 MG, TID
     Route: 065
  5. QUININE [Suspect]
     Active Substance: QUININE
     Dosage: ON DAY 208
     Route: 065

REACTIONS (3)
  - Deafness [Unknown]
  - Nausea [Unknown]
  - Vomiting [Unknown]
